FAERS Safety Report 7268738-9 (Version None)
Quarter: 2011Q1

REPORT INFORMATION
  Report Type: 
  Country: None (occurrence: None)
  Receive Date: 20110201
  Receipt Date: 20110127
  Transmission Date: 20110831
  Serious: Yes (Hospitalization)
  Sender: FDA-Public Use
  Company Number: DE-PFIZER INC-DE-WYE-H12051809

PATIENT
  Age: 40 Year
  Sex: Male
  Weight: 105 kg

DRUGS (7)
  1. CEFUROXIME [Suspect]
     Indication: LYME DISEASE
     Dosage: 500 MG, 2X/DAY
     Route: 048
     Dates: start: 20090812, end: 20090823
  2. AMLODIPINE/VALSARTAN [Suspect]
     Indication: HYPERTENSION
     Dosage: 1.0 DF, 1X/DAY
     Route: 048
     Dates: start: 20090401
  3. ALCOHOL [Suspect]
  4. DOXYCYCLINE [Suspect]
     Indication: LYME DISEASE
     Dosage: 200 MG, 1X/DAY
     Route: 048
     Dates: start: 20090727, end: 20090819
  5. PANTOZOL [Suspect]
     Indication: REFLUX OESOPHAGITIS
     Dosage: 40 MG, 1X/DAY
     Route: 048
     Dates: start: 20060101
  6. TERBINAFINE [Suspect]
     Indication: FUNGAL INFECTION
     Dosage: 250.0 MG, 1X/DAY
     Route: 048
     Dates: start: 20090701, end: 20090720
  7. BENZYLPENICILLIN [Suspect]
     Dosage: UNK
     Route: 048
     Dates: start: 20090720, end: 20090726

REACTIONS (11)
  - GENERAL PHYSICAL HEALTH DETERIORATION [None]
  - HEPATIC FIBROSIS [None]
  - TREMOR [None]
  - HEPATIC ENZYME INCREASED [None]
  - PORTAL HYPERTENSIVE GASTROPATHY [None]
  - HEPATIC STEATOSIS [None]
  - ASTHENIA [None]
  - HEPATOTOXICITY [None]
  - HEPATOMEGALY [None]
  - ALCOHOL INTERACTION [None]
  - TOXICITY TO VARIOUS AGENTS [None]
